FAERS Safety Report 10052183 (Version 4)
Quarter: 2014Q2

REPORT INFORMATION
  Report Type: Spontaneous
  Country: BE (occurrence: BE)
  Receive Date: 20140402
  Receipt Date: 20140416
  Transmission Date: 20141212
  Serious: Yes (Other)
  Sender: FDA-Public Use
  Company Number: BE-AMGEN-BELSP2014019116

PATIENT
  Age: 47 Year
  Sex: Female
  Weight: 59 kg

DRUGS (13)
  1. NEULASTA [Suspect]
     Indication: PROPHYLAXIS
     Dosage: 6 MG, 1 TIME PER 15 DAYS
     Route: 058
     Dates: start: 20140304, end: 20140304
  2. NEULASTA [Suspect]
     Indication: PROPHYLAXIS OF NAUSEA AND VOMITING
  3. FLUOROURACIL [Concomitant]
     Indication: BREAST CANCER
     Dosage: UNK
  4. EPIRUBICIN [Concomitant]
     Indication: BREAST CANCER
     Dosage: UNK
  5. CYCLOPHOSPHAMIDE [Concomitant]
     Indication: BREAST CANCER
     Dosage: 978 MG, 1/15 DAYS
     Route: 042
     Dates: start: 20140303
  6. DOXORUBICIN [Concomitant]
     Indication: BREAST CANCER
     Dosage: 98 MG 1 TIME PER 15 DAYS
     Route: 042
     Dates: start: 20140303, end: 20140303
  7. DOXORUBICIN [Concomitant]
     Indication: BREAST NEOPLASM
  8. DEXAMETHASONE [Concomitant]
     Indication: BREAST CANCER
     Dosage: 10 MG IV ON DAY OF CHEMOTHERAPY(03-MAR-14),8 MG PER OS ON 04-MAR-14,4 MG PER OS ON 05 AND 06 MAR-14
     Route: 042
     Dates: start: 20140303, end: 20140306
  9. DEXAMETHASONE [Concomitant]
     Indication: PROPHYLAXIS OF NAUSEA AND VOMITING
  10. EMEND                              /01627301/ [Concomitant]
     Indication: BREAST CANCER
     Dosage: 1 BOX OF 3 TABLETS 1 TIME PER 15 DAYS (125 MG ON THE DAY OF CHEMO (3-MAR),80 MG ON (4 AND 5 MAR)
     Route: 048
     Dates: start: 20140303, end: 20140305
  11. EMEND                              /01627301/ [Concomitant]
     Indication: PROPHYLAXIS OF NAUSEA AND VOMITING
  12. NOVABAN [Concomitant]
     Indication: PROPHYLAXIS OF NAUSEA AND VOMITING
     Dosage: 5 MG 1 TIME PER 15 DAYS
     Route: 042
     Dates: start: 20140303, end: 20140303
  13. ENDOXAN                            /00021101/ [Concomitant]
     Indication: BREAST NEOPLASM
     Dosage: 978 MG, 1 TIME PER 15 DAYS
     Route: 042
     Dates: start: 20140303, end: 20140303

REACTIONS (13)
  - Malaise [Recovered/Resolved]
  - Neutrophil count increased [Recovered/Resolved]
  - Pelvic pain [Recovered/Resolved]
  - Fatigue [Recovered/Resolved]
  - Feeling cold [Recovered/Resolved]
  - Dyspnoea [Recovered/Resolved]
  - Fall [Recovered/Resolved]
  - Loss of consciousness [Recovered/Resolved]
  - Chills [Recovered/Resolved]
  - Asthenia [Unknown]
  - Feeling hot [Unknown]
  - Visual impairment [Unknown]
  - Skin lesion [Unknown]
